FAERS Safety Report 7277777-3 (Version None)
Quarter: 2011Q1

REPORT INFORMATION
  Report Type: 
  Country: None (occurrence: None)
  Receive Date: 20110207
  Receipt Date: 20101108
  Transmission Date: 20110831
  Serious: No
  Sender: FDA-Public Use
  Company Number: A0875195A

PATIENT
  Age: 29 Year
  Sex: Female
  Weight: 69.1 kg

DRUGS (2)
  1. NO CONCURRENT MEDICATION [Concomitant]
  2. OLUX E [Suspect]
     Indication: ECZEMA
     Dosage: 1APP SINGLE DOSE
     Route: 061
     Dates: start: 20100614, end: 20100614

REACTIONS (1)
  - DRUG EXPOSURE DURING PREGNANCY [None]
